FAERS Safety Report 8190373-9 (Version None)
Quarter: 2012Q1

REPORT INFORMATION
  Report Type: 
  Country: None (occurrence: None)
  Receive Date: 20120305
  Receipt Date: 20120217
  Transmission Date: 20120608
  Serious: No
  Sender: FDA-Public Use
  Company Number: OPER20120126

PATIENT
  Sex: Male

DRUGS (1)
  1. OPANA [Suspect]
     Indication: BACK PAIN
     Dosage: 40 MG, 2 IN 1 D, ORAL
     Route: 048
     Dates: start: 20110901, end: 20120201

REACTIONS (1)
  - INADEQUATE ANALGESIA [None]
